FAERS Safety Report 4762828-8 (Version None)
Quarter: 2005Q3

REPORT INFORMATION
  Report Type: 
  Country: None (occurrence: None)
  Receive Date: 20050907
  Receipt Date: 20050831
  Transmission Date: 20060218
  Serious: Yes (Death, Other)
  Sender: FDA-Public Use
  Company Number: PHBS2005US12754

PATIENT
  Age: 82 Year
  Sex: Male

DRUGS (2)
  1. FAMCICLOVIR [Suspect]
     Indication: HERPES SIMPLEX OPHTHALMIC
     Dosage: 250-500 MG
     Route: 048
  2. FAMCICLOVIR [Suspect]
     Dosage: 500 MG, TID
     Dates: start: 20030401

REACTIONS (6)
  - ANAEMIA MACROCYTIC [None]
  - HAEMATURIA [None]
  - LEUKOCYTOCLASTIC VASCULITIS [None]
  - MYOCARDIAL INFARCTION [None]
  - PURPURA [None]
  - RASH [None]
